FAERS Safety Report 16362115 (Version 1)
Quarter: 2019Q2

REPORT INFORMATION
  Report Type: Spontaneous
  Country: GH (occurrence: GH)
  Receive Date: 20190528
  Receipt Date: 20190528
  Transmission Date: 20190711
  Serious: Yes (Death)
  Sender: FDA-Public Use
  Company Number: GH-JNJFOC-20190441291

PATIENT
  Age: 41 Year
  Sex: Female

DRUGS (4)
  1. CAELYX [Suspect]
     Active Substance: DOXORUBICIN HYDROCHLORIDE
     Indication: CERVIX CARCINOMA
     Route: 042
     Dates: start: 20190410
  2. CAELYX [Suspect]
     Active Substance: DOXORUBICIN HYDROCHLORIDE
     Indication: CERVIX CARCINOMA
     Route: 042
  3. CAELYX [Suspect]
     Active Substance: DOXORUBICIN HYDROCHLORIDE
     Indication: OVARIAN CANCER
     Route: 042
  4. CAELYX [Suspect]
     Active Substance: DOXORUBICIN HYDROCHLORIDE
     Indication: OVARIAN CANCER
     Route: 042
     Dates: start: 20190410

REACTIONS (7)
  - Headache [Unknown]
  - Dizziness [Unknown]
  - Vomiting [Unknown]
  - Cough [Unknown]
  - Dyspnoea [Unknown]
  - Death [Fatal]
  - Asthenia [Unknown]

NARRATIVE: CASE EVENT DATE: 20190416
